FAERS Safety Report 23331519 (Version 3)
Quarter: 2024Q2

REPORT INFORMATION
  Report Type: Report from Study
  Country: US (occurrence: US)
  Receive Date: 20231222
  Receipt Date: 20240606
  Transmission Date: 20240715
  Serious: Yes (Hospitalization)
  Sender: FDA-Public Use
  Company Number: US-ABBVIE-5520407

PATIENT
  Sex: Male

DRUGS (2)
  1. IMBRUVICA [Suspect]
     Active Substance: IBRUTINIB
     Indication: Anaemia
     Route: 048
     Dates: start: 202101
  2. IMBRUVICA [Suspect]
     Active Substance: IBRUTINIB
     Indication: Anaemia
     Route: 048

REACTIONS (3)
  - Hospitalisation [Recovered/Resolved]
  - Decubitus ulcer [Unknown]
  - Hospitalisation [Unknown]

NARRATIVE: CASE EVENT DATE: 20230101
